FAERS Safety Report 6122311-4 (Version None)
Quarter: 2009Q1

REPORT INFORMATION
  Report Type: 
  Country: None (occurrence: None)
  Receive Date: 20090316
  Receipt Date: 20090316
  Transmission Date: 20090719
  Serious: Yes (Hospitalization)
  Sender: FDA-Public Use
  Company Number: None

PATIENT
  Age: 49 Year
  Sex: Female
  Weight: 103.7 kg

DRUGS (1)
  1. BENICAR [Suspect]
     Indication: HYPERTENSION
     Dosage: 20 MG ONCE DAILY PO
     Route: 048
     Dates: start: 20090215, end: 20090218

REACTIONS (4)
  - DRUG HYPERSENSITIVITY [None]
  - LIP SWELLING [None]
  - SWELLING [None]
  - SWELLING FACE [None]
